FAERS Safety Report 8692238 (Version 4)
Quarter: 2014Q2

REPORT INFORMATION
  Report Type: Report from Study
  Country: US (occurrence: US)
  Receive Date: 20120730
  Receipt Date: 20140612
  Transmission Date: 20141212
  Serious: Yes (Hospitalization)
  Sender: FDA-Public Use
  Company Number: US-ACTELION-A-NJ2012-69080

PATIENT
  Age: 66 Year
  Sex: Female

DRUGS (15)
  1. TRACLEER [Suspect]
     Indication: PULMONARY ARTERIAL HYPERTENSION
     Dosage: 125 MG, UNK
     Route: 048
  2. COUMADIN [Concomitant]
  3. XANAX [Concomitant]
     Dosage: .5 MG, UNK
  4. LANTUS [Concomitant]
     Dosage: 100 U/ML, UNK
  5. HUMALOG [Concomitant]
     Dosage: 100 U/ML, UNK
  6. CATAPRES [Concomitant]
     Dosage: 0.1 MG, UNK
  7. SYNTHROID [Concomitant]
     Dosage: 125 MCG, UNK
  8. VENLAFAXINE [Concomitant]
     Dosage: 75 MG, UNK
  9. CHOLECALCIFEROL [Concomitant]
     Dosage: 2000 U, UNK
  10. OCUVITE LUTEIN [Concomitant]
  11. TYLENOL ARTHRITIS EXTENDED RELIEF [Concomitant]
     Dosage: 500 MG, UNK
  12. PROVENTIL [Concomitant]
     Dosage: 90 MCG, UNK
  13. ZOCOR [Concomitant]
     Dosage: 40 MG, UNK
  14. SYMBICORT [Concomitant]
     Dosage: 160-4.5 MCG
  15. ASPIRIN [Concomitant]
     Dosage: 81 MG, UNK

REACTIONS (4)
  - Dehydration [Unknown]
  - Anaemia [Unknown]
  - Urinary tract infection [Unknown]
  - Drug dose omission [Unknown]
